FAERS Safety Report 10337252 (Version 1)
Quarter: 2014Q3

REPORT INFORMATION
  Report Type: Spontaneous
  Country: CA (occurrence: CA)
  Receive Date: 20140723
  Receipt Date: 20140723
  Transmission Date: 20150326
  Serious: Yes (Other)
  Sender: FDA-Public Use
  Company Number: CA-MYLANLABS-2014S1016775

PATIENT
  Age: 22 Year
  Sex: Male

DRUGS (2)
  1. CLOZAPINE. [Suspect]
     Active Substance: CLOZAPINE
     Indication: SCHIZOPHRENIA
     Route: 065
  2. CLOZAPINE. [Suspect]
     Active Substance: CLOZAPINE
     Indication: SCHIZOPHRENIA
     Dosage: 12.5MG DAILY AND TITRATED TO 100 MG TWICE DAILY
     Route: 065

REACTIONS (4)
  - Pyrexia [Recovered/Resolved]
  - Blood creatinine increased [Unknown]
  - Malaise [Unknown]
  - Dehydration [Unknown]
